FAERS Safety Report 5915121-1 (Version None)
Quarter: 2008Q4

REPORT INFORMATION
  Report Type: 
  Country: None (occurrence: None)
  Receive Date: 20081010
  Receipt Date: 20081008
  Transmission Date: 20090506
  Serious: Yes (Hospitalization)
  Sender: FDA-Public Use
  Company Number: B0541012A

PATIENT
  Age: 90 Year
  Sex: Female

DRUGS (3)
  1. ARTIST [Suspect]
     Indication: HYPERTENSION
     Dosage: 10MG PER DAY
     Route: 048
     Dates: start: 20060101
  2. OLMETEC [Suspect]
     Indication: HYPERTENSION
     Dosage: 20MG PER DAY
     Route: 048
     Dates: start: 20060101
  3. PROCAINAMIDE HCL [Concomitant]
     Route: 065

REACTIONS (3)
  - ADAMS-STOKES SYNDROME [None]
  - LOSS OF CONSCIOUSNESS [None]
  - PULSE ABSENT [None]
